FAERS Safety Report 4732134-6 (Version None)
Quarter: 2005Q3

REPORT INFORMATION
  Report Type: 
  Country: None (occurrence: None)
  Receive Date: 20050725
  Receipt Date: 19951016
  Transmission Date: 20060218
  Serious: Yes (Other)
  Sender: FDA-Public Use
  Company Number: KII-1995-0015303

PATIENT
  Sex: Female

DRUGS (2)
  1. MS CONTIN [Suspect]
     Indication: CANCER PAIN
     Dosage: 600 MG, TID
  2. MORPHINE SULFATE [Suspect]
     Indication: CANCER PAIN
     Dosage: PRN

REACTIONS (1)
  - CONVULSION [None]
